FAERS Safety Report 14953641 (Version 4)
Quarter: 2023Q1

REPORT INFORMATION
  Report Type: Report from Study
  Country: CA (occurrence: CA)
  Receive Date: 20180530
  Receipt Date: 20230223
  Transmission Date: 20230418
  Serious: Yes (Life-Threatening, Hospitalization)
  Sender: FDA-Public Use
  Company Number: CA-JNJFOC-20180537125

PATIENT
  Age: 72 Year
  Sex: Male
  Weight: 77.11 kg

DRUGS (1)
  1. STELARA [Suspect]
     Active Substance: USTEKINUMAB
     Indication: Psoriasis
     Dosage: EXPIRY DATE: 31-JAN-2025
     Route: 058
     Dates: start: 20160623

REACTIONS (7)
  - Haematological infection [Unknown]
  - Kidney infection [Unknown]
  - Urinary tract infection [Not Recovered/Not Resolved]
  - Nephrolithiasis [Unknown]
  - Diabetes mellitus [Unknown]
  - Seizure [Unknown]
  - Anaemia [Unknown]

NARRATIVE: CASE EVENT DATE: 20180101
